FAERS Safety Report 8583607-X (Version None)
Quarter: 2012Q3

REPORT INFORMATION
  Report Type: 
  Country: None (occurrence: None)
  Receive Date: 20120809
  Receipt Date: 20120731
  Transmission Date: 20120928
  Serious: Yes (Other)
  Sender: FDA-Public Use
  Company Number: US-009507513-2012SP019470

PATIENT

DRUGS (3)
  1. AZITHROMYCIN [Concomitant]
     Dosage: 250 MG, QD
  2. PREDNISONE TAB [Concomitant]
  3. DULERA [Suspect]
     Dosage: 100/5 MCG, BID
     Route: 055
     Dates: start: 20111221, end: 20120130

REACTIONS (6)
  - SINUSITIS [None]
  - EMOTIONAL DISTRESS [None]
  - BLOOD SODIUM INCREASED [None]
  - ANXIETY [None]
  - ORAL CANDIDIASIS [None]
  - HEADACHE [None]
